FAERS Safety Report 18726685 (Version 1)
Quarter: 2021Q1

REPORT INFORMATION
  Report Type: Spontaneous
  Country: US (occurrence: US)
  Receive Date: 20210112
  Receipt Date: 20210112
  Transmission Date: 20210419
  Serious: No
  Sender: FDA-Public Use
  Company Number: US-SA-2021SA006299

PATIENT
  Age: 85 Year
  Sex: Female

DRUGS (2)
  1. SELSUN BLUE MEDICATED [Suspect]
     Active Substance: SELENIUM SULFIDE
  2. SELSUN BLUE ITCHY DRY SCALP [Concomitant]
     Active Substance: PYRITHIONE ZINC
     Indication: SKIN DISORDER

REACTIONS (1)
  - Hair colour changes [Unknown]
